FAERS Safety Report 8087220-2 (Version None)
Quarter: 2012Q1

REPORT INFORMATION
  Report Type: 
  Country: None (occurrence: None)
  Receive Date: 20120128
  Receipt Date: 20110506
  Transmission Date: 20120608
  Serious: No
  Sender: FDA-Public Use
  Company Number: US-ABBOTT-11P-163-0725730-00

PATIENT
  Sex: Female

DRUGS (1)
  1. HUMIRA [Suspect]
     Indication: RHEUMATOID ARTHRITIS
     Dates: start: 20110301, end: 20110413

REACTIONS (6)
  - JOINT SWELLING [None]
  - MALAISE [None]
  - VISION BLURRED [None]
  - HYPOAESTHESIA [None]
  - DIZZINESS [None]
  - ASTHENIA [None]
